FAERS Safety Report 18375543 (Version 1)
Quarter: 2020Q4

REPORT INFORMATION
  Report Type: Spontaneous
  Country: US (occurrence: US)
  Receive Date: 20201012
  Receipt Date: 20201012
  Transmission Date: 20210114
  Serious: Yes (Death)
  Sender: FDA-Public Use
  Company Number: None

PATIENT
  Age: 73 Year
  Sex: Male
  Weight: 114.76 kg

DRUGS (2)
  1. REMDESIVIR. [Suspect]
     Active Substance: REMDESIVIR
  2. N/A [Concomitant]
     Active Substance: UNSPECIFIED INGREDIENT

REACTIONS (12)
  - Acute kidney injury [None]
  - Encephalopathy [None]
  - Ventricular tachycardia [None]
  - Subcutaneous emphysema [None]
  - Anaemia [None]
  - Pyrexia [None]
  - Thrombocytopenia [None]
  - Mental status changes [None]
  - Pneumothorax [None]
  - Haemolysis [None]
  - Ventricular fibrillation [None]
  - Hyperglycaemia [None]

NARRATIVE: CASE EVENT DATE: 20201009
